FAERS Safety Report 8860461 (Version 2)
Quarter: 2012Q4

REPORT INFORMATION
  Report Type: 
  Country: US (occurrence: US)
  Receive Date: 20121025
  Receipt Date: 20121102
  Transmission Date: 20130627
  Serious: Yes (Death, Other)
  Sender: FDA-Public Use
  Company Number: US-JNJFOC-20121013208

PATIENT

DRUGS (6)
  1. DOXORUBICIN [Suspect]
     Indication: OSTEOSARCOMA METASTATIC
     Dosage: x 2 days
     Route: 042
  2. CISPLATIN [Suspect]
     Indication: OSTEOSARCOMA METASTATIC
     Dosage: x 2 days
     Route: 065
  3. METHOTREXATE [Suspect]
     Indication: OSTEOSARCOMA METASTATIC
     Route: 065
  4. DEXRAZOXANE [Suspect]
     Indication: OSTEOSARCOMA METASTATIC
     Dosage: 2 days
     Route: 065
  5. GRANULOCYTE COLONY STIMULATING FACTOR [Suspect]
     Indication: OSTEOSARCOMA METASTATIC
     Dosage: given with all courses except methotrexate
     Route: 065
  6. LEUCOVORIN [Suspect]
     Indication: OSTEOSARCOMA METASTATIC
     Dosage: x 10 doses starting 24 hours after methotrexate
     Route: 065

REACTIONS (5)
  - Renal failure [Fatal]
  - Pyrexia [Unknown]
  - Neutropenia [Unknown]
  - Dehydration [Unknown]
  - Off label use [Unknown]
